FAERS Safety Report 9325637 (Version 3)
Quarter: 2013Q3

REPORT INFORMATION
  Report Type: Report from Study
  Country: US (occurrence: US)
  Receive Date: 20130604
  Receipt Date: 20130705
  Transmission Date: 20140515
  Serious: Yes (Hospitalization, Other)
  Sender: FDA-Public Use
  Company Number: US-VERTEX PHARMACEUTICALS INC-2013-006377

PATIENT
  Age: 54 Year
  Sex: Male
  Weight: 93.9 kg

DRUGS (6)
  1. INCIVEK [Suspect]
     Indication: HEPATITIS C
     Dosage: 750 MG, UNK
     Route: 048
     Dates: start: 20130325, end: 20130616
  2. COPEGUS [Suspect]
     Indication: HEPATITIS C
     Dosage: 1200 MG, UNK
     Dates: start: 20130225, end: 20130521
  3. COPEGUS [Suspect]
     Dosage: 600 MG, QD
     Dates: start: 20130525
  4. PEGASYS [Suspect]
     Indication: HEPATITIS C
     Dosage: 180 ?G, QW
     Route: 058
     Dates: start: 20130225
  5. AMOXICILLIN [Concomitant]
     Dosage: 1 TABLET
     Route: 048
     Dates: start: 20130511, end: 20130517
  6. CLINDAMYCIN [Concomitant]
     Dosage: 1 TABLET
     Route: 048
     Dates: start: 20130518

REACTIONS (4)
  - Gingival bleeding [Recovered/Resolved]
  - Anaemia [Recovered/Resolved]
  - Pyrexia [Not Recovered/Not Resolved]
  - Infection [Not Recovered/Not Resolved]
